FAERS Safety Report 5470008-6 (Version None)
Quarter: 2007Q3

REPORT INFORMATION
  Report Type: 
  Country: None (occurrence: None)
  Receive Date: 20070927
  Receipt Date: 20070917
  Transmission Date: 20080115
  Serious: Yes (Hospitalization, Other)
  Sender: FDA-Public Use
  Company Number: US-PFIZER INC-2007031100

PATIENT
  Sex: Female
  Weight: 56.7 kg

DRUGS (9)
  1. BEXTRA [Suspect]
     Indication: INTERVERTEBRAL DISC DISORDER
  2. VIOXX [Suspect]
     Indication: INTERVERTEBRAL DISC DISORDER
     Route: 048
     Dates: start: 20010101
  3. CARDIZEM [Concomitant]
  4. PROCARDIA [Concomitant]
     Dates: start: 19910101
  5. CATAPRES [Concomitant]
  6. WELLBUTRIN [Concomitant]
     Dates: start: 20010101
  7. ASPIRIN [Concomitant]
     Dates: start: 19910101, end: 20040301
  8. SOMA [Concomitant]
     Dates: start: 19980101
  9. K-DUR 10 [Concomitant]
     Dates: start: 19980101

REACTIONS (3)
  - ANXIETY [None]
  - CEREBROVASCULAR ACCIDENT [None]
  - DEPRESSION [None]
